FAERS Safety Report 8268768-4 (Version None)
Quarter: 2012Q2

REPORT INFORMATION
  Report Type: 
  Country: None (occurrence: None)
  Receive Date: 20120409
  Receipt Date: 20120409
  Transmission Date: 20120825
  Serious: Yes (Other)
  Sender: FDA-Public Use
  Company Number: None

PATIENT
  Age: 25 Year
  Sex: Male
  Weight: 94.347 kg

DRUGS (1)
  1. CITALOPRAM HYDROBROMIDE [Suspect]
     Indication: DEPRESSION
     Dosage: 20.0 MG
     Route: 048
     Dates: start: 20111208, end: 20120405

REACTIONS (5)
  - WEIGHT INCREASED [None]
  - IRRITABILITY [None]
  - HEADACHE [None]
  - WITHDRAWAL SYNDROME [None]
  - BOWEL MOVEMENT IRREGULARITY [None]
